FAERS Safety Report 7654331-2 (Version None)
Quarter: 2011Q3

REPORT INFORMATION
  Report Type: 
  Country: None (occurrence: None)
  Receive Date: 20110728
  Receipt Date: 20110712
  Transmission Date: 20111222
  Serious: Yes (Hospitalization)
  Sender: FDA-Public Use
  Company Number: AUR-APL-2011-04234

PATIENT
  Age: 86 Year
  Sex: Female

DRUGS (4)
  1. ATENOLOL [Suspect]
     Indication: HYPERTENSION
     Dosage: (100 MG,1 D),ORAL
     Route: 048
     Dates: start: 20080101, end: 20110330
  2. MODURETIC 5-50 [Suspect]
     Indication: HYPERTENSION
     Dosage: (1 DOSAGE FORMS,1 D),ORAL
     Route: 048
     Dates: start: 20080101, end: 20110303
  3. EUTIROX (LEVOTHYROXINE) [Concomitant]
  4. ASPIRIN [Concomitant]

REACTIONS (1)
  - PRESYNCOPE [None]
